FAERS Safety Report 17780728 (Version 1)
Quarter: 2020Q2

REPORT INFORMATION
  Report Type: Spontaneous
  Country: US (occurrence: US)
  Receive Date: 20200513
  Receipt Date: 20200513
  Transmission Date: 20200714
  Serious: Yes (Hospitalization)
  Sender: FDA-Public Use
  Company Number: None

PATIENT
  Age: 73 Year
  Sex: Male
  Weight: 89.36 kg

DRUGS (1)
  1. ADALIMUMAB (ADALIMUMAB 40MG/0.4ML INJ, PEN, KIT) [Suspect]
     Active Substance: ADALIMUMAB
     Indication: PSORIASIS
     Dates: start: 20190826, end: 20191028

REACTIONS (4)
  - Hypotension [None]
  - Sepsis [None]
  - Atrial fibrillation [None]
  - Legionella infection [None]

NARRATIVE: CASE EVENT DATE: 20191012
